FAERS Safety Report 7458690-5 (Version None)
Quarter: 2011Q2

REPORT INFORMATION
  Report Type: 
  Country: None (occurrence: None)
  Receive Date: 20110504
  Receipt Date: 20100706
  Transmission Date: 20111010
  Serious: No
  Sender: FDA-Public Use
  Company Number: US-SANOFI-AVENTIS-2010SA039315

PATIENT
  Age: 80 Year
  Sex: Female

DRUGS (3)
  1. LANTUS [Suspect]
     Dates: start: 20100702
  2. HUMALOG [Concomitant]
     Dosage: 22 UNITS AND 12 UNITS AT DINNER
     Route: 065
     Dates: end: 20100701
  3. APIDRA [Suspect]
     Dosage: SLIDING SCALE
     Route: 058
     Dates: start: 20100702

REACTIONS (2)
  - BLOOD GLUCOSE INCREASED [None]
  - INSULIN RESISTANCE [None]
